FAERS Safety Report 20146196 (Version 4)
Quarter: 2025Q1

REPORT INFORMATION
  Report Type: Report from Study
  Country: US (occurrence: US)
  Receive Date: 20211203
  Receipt Date: 20250205
  Transmission Date: 20250408
  Serious: No
  Sender: TAKEDA
  Company Number: US-TAKEDA-US201912416

PATIENT
  Sex: Female
  Weight: 64 kg

DRUGS (17)
  1. HUMAN IMMUNOGLOBULIN G\HYALURONIDASE RECOMBINANT HUMAN [Suspect]
     Active Substance: HUMAN IMMUNOGLOBULIN G\HYALURONIDASE (HUMAN RECOMBINANT)
     Indication: Immunodeficiency common variable
     Dosage: 30 GRAM, Q4WEEKS
     Dates: start: 20180207
  2. HUMAN IMMUNOGLOBULIN G\HYALURONIDASE RECOMBINANT HUMAN [Suspect]
     Active Substance: HUMAN IMMUNOGLOBULIN G\HYALURONIDASE (HUMAN RECOMBINANT)
     Indication: Primary immunodeficiency syndrome
     Dosage: 30 GRAM, Q4WEEKS
     Dates: start: 20180226
  3. PRAMIPEXOLE DIHYDROCHLORIDE [Concomitant]
     Active Substance: PRAMIPEXOLE DIHYDROCHLORIDE
  4. VYVANSE [Concomitant]
     Active Substance: LISDEXAMFETAMINE DIMESYLATE
  5. ARMOUR THYROID [Concomitant]
     Active Substance: THYROID, PORCINE
  6. GABAPENTIN [Concomitant]
     Active Substance: GABAPENTIN
  7. FLUCONAZOLE [Concomitant]
     Active Substance: FLUCONAZOLE
  8. ADDERALL [Concomitant]
     Active Substance: AMPHETAMINE ASPARTATE\AMPHETAMINE SULFATE\DEXTROAMPHETAMINE SACCHARATE\DEXTROAMPHETAMINE SULFATE
  9. ALEVE [Concomitant]
     Active Substance: NAPROXEN SODIUM
  10. ROZEREM [Concomitant]
     Active Substance: RAMELTEON
  11. CLONAZEPAM [Concomitant]
     Active Substance: CLONAZEPAM
  12. ACETAMINOPHEN [Concomitant]
     Active Substance: ACETAMINOPHEN
  13. SODIUM CHLORIDE [Concomitant]
     Active Substance: SODIUM CHLORIDE
  14. IBUPROFEN [Concomitant]
     Active Substance: IBUPROFEN
  15. LIDOCAINE [Concomitant]
     Active Substance: LIDOCAINE
  16. DIPHENHYDRAMINE HYDROCHLORIDE [Concomitant]
     Active Substance: DIPHENHYDRAMINE HYDROCHLORIDE
  17. HORIZANT [Concomitant]
     Active Substance: GABAPENTIN ENACARBIL

REACTIONS (7)
  - Pain [Recovered/Resolved]
  - Product storage error [Recovered/Resolved]
  - Product dose omission issue [Unknown]
  - Inappropriate schedule of product administration [Unknown]
  - Blood pressure increased [Recovered/Resolved]
  - Inability to afford medication [Unknown]
  - Malaise [Unknown]

NARRATIVE: CASE EVENT DATE: 20180101
